FAERS Safety Report 9814872 (Version 1)
Quarter: 2014Q1

REPORT INFORMATION
  Report Type: Spontaneous
  Country: JP (occurrence: JP)
  Receive Date: 20140113
  Receipt Date: 20140113
  Transmission Date: 20141002
  Serious: Yes (Hospitalization)
  Sender: FDA-Public Use
  Company Number: JP-GLAXOSMITHKLINE-B0744071A

PATIENT
  Age: 27 Year
  Sex: Female

DRUGS (2)
  1. LAMICTAL [Suspect]
     Indication: BIPOLAR DISORDER
     Dosage: 25MG PER DAY
     Route: 048
     Dates: start: 201105, end: 20110621
  2. CLONAZEPAM [Concomitant]
     Route: 048

REACTIONS (29)
  - Drug reaction with eosinophilia and systemic symptoms [Recovered/Resolved]
  - Oesophageal candidiasis [Unknown]
  - Schizophrenia [Unknown]
  - Oropharyngeal pain [Unknown]
  - Pyrexia [Unknown]
  - Tonsillar hypertrophy [Unknown]
  - Stomatitis [Unknown]
  - Tongue coated [Unknown]
  - Candida infection [Unknown]
  - Upper respiratory tract infection [Unknown]
  - Pyrexia [Unknown]
  - White blood cell count decreased [Recovered/Resolved]
  - Platelet count decreased [Recovered/Resolved]
  - Hepatic function abnormal [Recovering/Resolving]
  - Purpura [Unknown]
  - Erythema [Unknown]
  - Oedema [Unknown]
  - Eosinophil count increased [Unknown]
  - Lymphocyte morphology abnormal [Unknown]
  - Lymphadenopathy [Unknown]
  - Rash pustular [Unknown]
  - Face oedema [Unknown]
  - Seborrhoeic dermatitis [Unknown]
  - Erythema [Unknown]
  - Rash pustular [Unknown]
  - Neutrophilic dermatosis [Unknown]
  - Oral candidiasis [Unknown]
  - Rash [Recovering/Resolving]
  - Lymphadenopathy [Unknown]
